FAERS Safety Report 6234198-X (Version None)
Quarter: 2009Q2

REPORT INFORMATION
  Report Type: 
  Country: None (occurrence: None)
  Receive Date: 20090618
  Receipt Date: 20090612
  Transmission Date: 20091009
  Serious: Yes (Hospitalization)
  Sender: FDA-Public Use
  Company Number: NL-BAYER-200923343GPV

PATIENT
  Age: 66 Year
  Sex: Male

DRUGS (2)
  1. NEXAVAR [Suspect]
     Indication: NEOPLASM PROGRESSION
     Dosage: TOTAL DAILY DOSE: 200 MG  UNIT DOSE: 200 MG
     Route: 048
     Dates: start: 20090528, end: 20090602
  2. NEXAVAR [Suspect]
     Dosage: TOTAL DAILY DOSE: 400 MG  UNIT DOSE: 200 MG
     Route: 048
     Dates: start: 20090603, end: 20090601

REACTIONS (1)
  - CONFUSIONAL STATE [None]
